FAERS Safety Report 5676127-3 (Version None)
Quarter: 2008Q1

REPORT INFORMATION
  Report Type: 
  Country: None (occurrence: None)
  Receive Date: 20080321
  Receipt Date: 20080312
  Transmission Date: 20080703
  Serious: Yes (Other)
  Sender: FDA-Public Use
  Company Number: US-BAYER-200712750BWH

PATIENT
  Age: 72 Year
  Sex: Male

DRUGS (3)
  1. NEXAVAR [Suspect]
     Indication: RENAL CELL CARCINOMA
     Dosage: TOTAL DAILY DOSE: 800 MG  UNIT DOSE: 200 MG
     Route: 048
     Dates: end: 20070813
  2. PRILOSEC [Concomitant]
  3. VITAMINS [Concomitant]

REACTIONS (7)
  - AURICULAR SWELLING [None]
  - ERYTHEMA [None]
  - FATIGUE [None]
  - HYPERTENSION [None]
  - NAUSEA [None]
  - RASH [None]
  - SWELLING FACE [None]
